FAERS Safety Report 13354471 (Version 2)
Quarter: 2017Q1

REPORT INFORMATION
  Report Type: Spontaneous
  Country: CA (occurrence: CA)
  Receive Date: 20170321
  Receipt Date: 20170323
  Transmission Date: 20170429
  Serious: Yes (Hospitalization, Other)
  Sender: FDA-Public Use
  Company Number: CA-CELLTRION INC.-2017CA001102

PATIENT

DRUGS (7)
  1. INFLECTRA [Suspect]
     Active Substance: INFLIXIMAB-DYYB
     Indication: COLITIS ULCERATIVE
     Dosage: 525 MG, CYCLIC ON WEEKS 2, 6 THEN EVERY 8 WEEKS FOR 12 MONTHS
     Route: 042
     Dates: end: 20170108
  2. INFLECTRA [Suspect]
     Active Substance: INFLIXIMAB-DYYB
     Dosage: 455 MG, CYCLIC  ON WEEKS 2, 6 THEN EVERY 8 WEEKS FOR 12 MONTHS
     Route: 042
     Dates: start: 20170109
  3. INFLECTRA [Suspect]
     Active Substance: INFLIXIMAB-DYYB
     Dosage: 455 MG, ON WEEKS 2, 6 THEN EVERY 8 WEEKS FOR 12 MONTHS
     Route: 042
  4. INFLECTRA [Suspect]
     Active Substance: INFLIXIMAB-DYYB
     Dosage: UNK
     Route: 065
     Dates: end: 201703
  5. PREDNISONE                         /00044702/ [Concomitant]
     Active Substance: PREDNISONE
     Dosage: 30 MG, DAILY
     Dates: start: 20161216
  6. MEZAVANT [Concomitant]
     Active Substance: MESALAMINE
     Dosage: 2.4 MG, UNK
     Dates: start: 2009
  7. PREDNISONE                         /00044702/ [Concomitant]
     Active Substance: PREDNISONE
     Dosage: 40 MG, FOR 2 DAYS
     Dates: start: 20161214

REACTIONS (5)
  - Arthritis [Not Recovered/Not Resolved]
  - Pain [Unknown]
  - Therapy non-responder [Unknown]
  - Haemorrhage [Unknown]
  - Weight decreased [Recovering/Resolving]

NARRATIVE: CASE EVENT DATE: 20170109
